FAERS Safety Report 6390421-2 (Version None)
Quarter: 2009Q4

REPORT INFORMATION
  Report Type: 
  Country: None (occurrence: None)
  Receive Date: 20091006
  Receipt Date: 20090930
  Transmission Date: 20100525
  Serious: Yes (Death, Other)
  Sender: FDA-Public Use
  Company Number: TW-BAYER-200934223GPV

PATIENT
  Age: 55 Year
  Sex: Male

DRUGS (4)
  1. SORAFENIB [Suspect]
     Indication: HEPATIC NEOPLASM MALIGNANT
     Route: 048
     Dates: start: 20090228, end: 20090101
  2. SORAFENIB [Suspect]
     Route: 048
     Dates: start: 20090101, end: 20090101
  3. FUROSEMIDE [Suspect]
     Indication: DIURETIC THERAPY
     Route: 048
     Dates: start: 20090228
  4. SPIRONOLACTONE [Suspect]
     Indication: DIURETIC THERAPY
     Route: 048
     Dates: start: 20090228, end: 20090101

REACTIONS (8)
  - DEHYDRATION [None]
  - HEPATITIS B [None]
  - HYPERKALAEMIA [None]
  - HYPERURICAEMIA [None]
  - METABOLIC ACIDOSIS [None]
  - MULTI-ORGAN FAILURE [None]
  - RENAL FAILURE ACUTE [None]
  - TUMOUR LYSIS SYNDROME [None]
